FAERS Safety Report 20094110 (Version 2)
Quarter: 2021Q4

REPORT INFORMATION
  Report Type: Spontaneous
  Country: US (occurrence: US)
  Receive Date: 20211122
  Receipt Date: 20211217
  Transmission Date: 20220304
  Serious: No
  Sender: FDA-Public Use
  Company Number: US-JNJFOC-20211125163

PATIENT
  Age: 55 Year
  Sex: Female
  Weight: 76.272 kg

DRUGS (1)
  1. STELARA [Suspect]
     Active Substance: USTEKINUMAB
     Indication: Psoriatic arthropathy
     Route: 058
     Dates: start: 2015

REACTIONS (2)
  - Psoriasis [Unknown]
  - Therapeutic response decreased [Unknown]
